FAERS Safety Report 7778848-5 (Version None)
Quarter: 2011Q3

REPORT INFORMATION
  Report Type: 
  Country: None (occurrence: None)
  Receive Date: 20110926
  Receipt Date: 20110921
  Transmission Date: 20111222
  Serious: No
  Sender: FDA-Public Use
  Company Number: US-BAYER-2011-089605

PATIENT
  Sex: Female

DRUGS (3)
  1. TAXOTERE [Concomitant]
     Indication: LUNG NEOPLASM MALIGNANT
  2. GEMZAR [Concomitant]
     Indication: LUNG NEOPLASM MALIGNANT
  3. NEXAVAR [Suspect]
     Indication: LUNG NEOPLASM MALIGNANT
     Dosage: UNK
     Dates: start: 20110101

REACTIONS (1)
  - IMPAIRED HEALING [None]
